FAERS Safety Report 5648467-5 (Version None)
Quarter: 2008Q1

REPORT INFORMATION
  Report Type: 
  Country: None (occurrence: None)
  Receive Date: 20080304
  Receipt Date: 20080225
  Transmission Date: 20080703
  Serious: Yes (Other)
  Sender: FDA-Public Use
  Company Number: PHRM2008FR00910

PATIENT
  Age: 44 Year
  Sex: Male

DRUGS (5)
  1. TRILEPTAL [Suspect]
     Indication: EPILEPSY
     Dosage: 800 MG, QD
     Route: 048
  2. TEMODAL [Suspect]
     Indication: BRAIN NEOPLASM
     Route: 048
     Dates: start: 20040601, end: 20060501
  3. DEPAKENE [Suspect]
     Indication: EPILEPSY
     Dosage: 1250 MG, QD
  4. GARDENAL [Suspect]
     Indication: EPILEPSY
     Dosage: 150 MG, QD
  5. URBANYL [Suspect]
     Indication: EPILEPSY
     Dosage: 800 MG, QD

REACTIONS (2)
  - BLOOD TESTOSTERONE DECREASED [None]
  - ERECTILE DYSFUNCTION [None]
